FAERS Safety Report 19603607 (Version 3)
Quarter: 2021Q3

REPORT INFORMATION
  Report Type: Report from Study
  Country: US (occurrence: US)
  Receive Date: 20210723
  Receipt Date: 20210803
  Transmission Date: 20211014
  Serious: Yes (Death, Life-Threatening, Hospitalization, Other)
  Sender: FDA-Public Use
  Company Number: NVSC2021US165672

PATIENT
  Age: 49 Year
  Sex: Female
  Weight: 64.1 kg

DRUGS (1)
  1. KESIMPTA [Suspect]
     Active Substance: OFATUMUMAB
     Indication: RELAPSING-REMITTING MULTIPLE SCLEROSIS
     Dosage: 20 MG, QMO
     Route: 058
     Dates: start: 20201230

REACTIONS (10)
  - Bilirubin urine present [Unknown]
  - Blood urine present [Unknown]
  - Staphylococcus test positive [Unknown]
  - Urine ketone body present [Unknown]
  - Protein urine present [Unknown]
  - Nitrite urine present [Unknown]
  - Haemorrhage [Fatal]
  - Febrile nonhaemolytic transfusion reaction [Unknown]
  - Blood alkaline phosphatase increased [Unknown]
  - Platelet count decreased [Unknown]

NARRATIVE: CASE EVENT DATE: 20210510
